FAERS Safety Report 17374330 (Version 1)
Quarter: 2020Q1

REPORT INFORMATION
  Report Type: Spontaneous
  Country: US (occurrence: US)
  Receive Date: 20200121
  Receipt Date: 20200121
  Transmission Date: 20200409
  Serious: No
  Sender: FDA-Public Use
  Company Number: None

PATIENT
  Age: 77 Year
  Sex: Male
  Weight: 92 kg

DRUGS (1)
  1. DULOXETINE (DULOXETINE HCL 30MG CAP.EC) [Suspect]
     Active Substance: DULOXETINE HYDROCHLORIDE
     Indication: PAIN
     Dosage: ?          OTHER FREQUENCY:AM;?
     Route: 048
     Dates: start: 20190513, end: 20191201

REACTIONS (1)
  - Flushing [None]

NARRATIVE: CASE EVENT DATE: 20191201
